FAERS Safety Report 6645447-8 (Version None)
Quarter: 2010Q1

REPORT INFORMATION
  Report Type: 
  Country: None (occurrence: None)
  Receive Date: 20100322
  Receipt Date: 20100311
  Transmission Date: 20100710
  Serious: Yes (Hospitalization)
  Sender: FDA-Public Use
  Company Number: BR-ASTRAZENECA-2010SE10849

PATIENT
  Age: 86 Year
  Sex: Male
  Weight: 61 kg

DRUGS (2)
  1. ATACAND HCT [Suspect]
     Indication: HYPERTENSION
     Dosage: 8/12.5 MG
     Route: 048
     Dates: start: 20080301
  2. CARDILOL [Concomitant]
     Route: 048
     Dates: start: 20080101

REACTIONS (5)
  - BLOOD GLUCOSE FLUCTUATION [None]
  - DRUG INEFFECTIVE [None]
  - HYPERTENSION [None]
  - OEDEMA PERIPHERAL [None]
  - THROMBOSIS [None]
